FAERS Safety Report 19024908 (Version 1)
Quarter: 2021Q1

REPORT INFORMATION
  Report Type: Spontaneous
  Country: US (occurrence: US)
  Receive Date: 20210316
  Receipt Date: 20210316
  Transmission Date: 20210420
  Serious: Yes (Hospitalization)
  Sender: FDA-Public Use
  Company Number: None

PATIENT
  Age: 65 Year
  Sex: Male

DRUGS (1)
  1. SUTENT [Suspect]
     Active Substance: SUNITINIB MALATE
     Indication: LUNG CARCINOMA CELL TYPE UNSPECIFIED STAGE 0
     Route: 051
     Dates: start: 201907

REACTIONS (4)
  - Hernia obstructive [None]
  - Intestinal obstruction [None]
  - Therapy interrupted [None]
  - Incisional hernia [None]

NARRATIVE: CASE EVENT DATE: 20210224
